FAERS Safety Report 13997419 (Version 1)
Quarter: 2017Q3

REPORT INFORMATION
  Report Type: Spontaneous
  Country: US (occurrence: US)
  Receive Date: 20170921
  Receipt Date: 20170921
  Transmission Date: 20171128
  Serious: No
  Sender: FDA-Public Use
  Company Number: US-SHIRE-US201719361

PATIENT

DRUGS (1)
  1. GATTEX [Suspect]
     Active Substance: TEDUGLUTIDE\WATER
     Indication: PRODUCT USED FOR UNKNOWN INDICATION
     Dosage: 0.03 ML, UNK
     Route: 058

REACTIONS (5)
  - Increased appetite [Unknown]
  - Weight increased [Unknown]
  - Peripheral swelling [Unknown]
  - Hot flush [Unknown]
  - Joint swelling [Unknown]
